FAERS Safety Report 17211940 (Version 1)
Quarter: 2019Q4

REPORT INFORMATION
  Report Type: Spontaneous
  Country: US (occurrence: US)
  Receive Date: 20191230
  Receipt Date: 20191230
  Transmission Date: 20200122
  Serious: No
  Sender: FDA-Public Use
  Company Number: US-ALLERGAN-1908873US

PATIENT
  Sex: Male

DRUGS (1)
  1. BYSTOLIC [Suspect]
     Active Substance: NEBIVOLOL HYDROCHLORIDE
     Indication: PALPITATIONS
     Dosage: UNK
     Route: 065
     Dates: start: 2017

REACTIONS (4)
  - Inappropriate schedule of product administration [Unknown]
  - Erythema [Unknown]
  - Flushing [Unknown]
  - Off label use [Unknown]
